FAERS Safety Report 9270732 (Version 1)
Quarter: 2013Q2

REPORT INFORMATION
  Report Type: Spontaneous
  Country: US (occurrence: US)
  Receive Date: 20130504
  Receipt Date: 20130504
  Transmission Date: 20140414
  Serious: No
  Sender: FDA-Public Use
  Company Number: US-009507513-1304USA015642

PATIENT
  Age: 40 Year
  Sex: Male

DRUGS (1)
  1. SAPHRIS [Suspect]
     Indication: PSYCHOTIC DISORDER
     Dosage: 20 MG, QD AT NIGHT
     Route: 060

REACTIONS (3)
  - Foaming at mouth [Unknown]
  - Application site inflammation [Unknown]
  - Application site ulcer [Unknown]
